FAERS Safety Report 13697735 (Version 4)
Quarter: 2018Q1

REPORT INFORMATION
  Report Type: Spontaneous
  Country: CA (occurrence: CA)
  Receive Date: 20170628
  Receipt Date: 20180116
  Transmission Date: 20180508
  Serious: Yes (Hospitalization, Other)
  Sender: FDA-Public Use
  Company Number: CA-GLAXOSMITHKLINE-CA2017GSK026357

PATIENT
  Sex: Female

DRUGS (1)
  1. BENLYSTA [Suspect]
     Active Substance: BELIMUMAB
     Indication: SYSTEMIC LUPUS ERYTHEMATOSUS
     Dosage: 750 MG, UNK

REACTIONS (13)
  - Cough [Unknown]
  - Ulcer [Unknown]
  - Nausea [Unknown]
  - Fatigue [Unknown]
  - Diarrhoea [Unknown]
  - Central nervous system lupus [Unknown]
  - Drug ineffective [Unknown]
  - Systemic lupus erythematosus rash [Unknown]
  - Lower respiratory tract infection [Unknown]
  - White blood cell count decreased [Unknown]
  - Arthralgia [Unknown]
  - Lupus nephritis [Unknown]
  - Myalgia [Unknown]
